FAERS Safety Report 14845941 (Version 1)
Quarter: 2018Q2

REPORT INFORMATION
  Report Type: Spontaneous
  Country: FR (occurrence: FR)
  Receive Date: 20180504
  Receipt Date: 20180504
  Transmission Date: 20180711
  Serious: Yes (Other)
  Sender: FDA-Public Use
  Company Number: FR-MERCK KGAA-2047176

PATIENT
  Sex: Male

DRUGS (1)
  1. NOVOTHYROX [Suspect]
     Active Substance: LEVOTHYROXINE SODIUM
     Indication: POST PROCEDURAL HYPOTHYROIDISM

REACTIONS (19)
  - Abdominal pain upper [None]
  - Loss of personal independence in daily activities [None]
  - Asthenia [None]
  - Psychiatric symptom [None]
  - Fatigue [None]
  - Pain [None]
  - Ear discomfort [None]
  - Depression [None]
  - Lipase increased [None]
  - Emotional distress [None]
  - Paraesthesia [None]
  - Weight increased [None]
  - Blood thyroid stimulating hormone increased [None]
  - Blood pressure increased [None]
  - Feeling abnormal [None]
  - Impaired work ability [None]
  - Spinal cord ischaemia [None]
  - Alopecia [None]
  - Gingival pain [None]
